FAERS Safety Report 6694753-X (Version None)
Quarter: 2010Q2

REPORT INFORMATION
  Report Type: 
  Country: None (occurrence: None)
  Receive Date: 20100423
  Receipt Date: 20100415
  Transmission Date: 20101027
  Serious: Yes (Other)
  Sender: FDA-Public Use
  Company Number: B0614826A

PATIENT
  Age: 12 Year
  Sex: Male

DRUGS (1)
  1. RELENZA [Suspect]
     Indication: INFLUENZA
     Dosage: 40MG PER DAY
     Route: 055
     Dates: start: 20090312, end: 20090314

REACTIONS (2)
  - ABNORMAL BEHAVIOUR [None]
  - NERVOUS SYSTEM DISORDER [None]
